FAERS Safety Report 5882551-6 (Version None)
Quarter: 2008Q3

REPORT INFORMATION
  Report Type: 
  Country: None (occurrence: None)
  Receive Date: 20080913
  Receipt Date: 20080805
  Transmission Date: 20090109
  Serious: No
  Sender: FDA-Public Use
  Company Number: US-ABBOTT-08P-163-0469255-00

PATIENT
  Sex: Female
  Weight: 83.99 kg

DRUGS (13)
  1. HUMIRA [Suspect]
     Indication: RHEUMATOID ARTHRITIS
     Route: 050
     Dates: start: 20080426
  2. METHOTREXATE [Concomitant]
     Indication: RHEUMATOID ARTHRITIS
     Route: 048
     Dates: end: 20080722
  3. METHOTREXATE [Concomitant]
     Route: 048
     Dates: start: 20080722
  4. CENTRUM SILVER NO IRON [Concomitant]
     Indication: VITAMIN SUPPLEMENTATION
     Route: 048
  5. ASCORBIC ACID [Concomitant]
     Indication: VITAMIN SUPPLEMENTATION
     Route: 048
  6. ERGOCALCIFEROL [Concomitant]
     Indication: VITAMIN SUPPLEMENTATION
     Route: 048
  7. FISH OIL [Concomitant]
     Indication: MEDICAL DIET
     Dosage: FOUR PILLS IN ONE DAY
     Route: 048
  8. LINUM USITATISSIMUM SEED OIL [Concomitant]
     Indication: MEDICAL DIET
     Dosage: THREE TABLETS EVERY DAY
     Route: 048
  9. LEVOTHYROXINE SODIUM [Concomitant]
     Indication: HYPOTHYROIDISM
     Route: 048
  10. PRINZIDE [Concomitant]
     Indication: BLOOD PRESSURE
     Dosage: 20/25 EVERY DAY
     Route: 048
  11. METOPROLOL TARTRATE [Concomitant]
     Indication: BLOOD PRESSURE
     Route: 048
  12. FOLIC ACID [Concomitant]
     Indication: VITAMIN SUPPLEMENTATION
     Route: 048
  13. ACETYLSALICYLIC ACID SRT [Concomitant]
     Indication: ANTICOAGULANT THERAPY
     Route: 048

REACTIONS (3)
  - DRUG INEFFECTIVE [None]
  - DRY EYE [None]
  - VISUAL ACUITY REDUCED [None]
